FAERS Safety Report 24581656 (Version 2)
Quarter: 2024Q4

REPORT INFORMATION
  Report Type: Spontaneous
  Country: US (occurrence: US)
  Receive Date: 20241105
  Receipt Date: 20241107
  Transmission Date: 20250115
  Serious: Yes (Disabling)
  Sender: PFIZER
  Company Number: US-MLMSERVICE-20241028-PI231791-00060-3

PATIENT
  Sex: Female

DRUGS (3)
  1. AZITHROMYCIN [Suspect]
     Active Substance: AZITHROMYCIN
     Indication: Mycobacterium marinum infection
     Dosage: 500 MG, DAILY
     Route: 048
  2. RIFAMPIN [Suspect]
     Active Substance: RIFAMPIN
     Indication: Mycobacterium marinum infection
     Dosage: 600 MG
  3. ETHAMBUTOL [Suspect]
     Active Substance: ETHAMBUTOL HYDROCHLORIDE
     Indication: Mycobacterium marinum infection
     Dosage: 1600 MG

REACTIONS (5)
  - Paradoxical skin reaction [Recovering/Resolving]
  - Condition aggravated [Recovering/Resolving]
  - Skin lesion [Recovering/Resolving]
  - Off label use [Unknown]
  - Product use issue [Unknown]
